FAERS Safety Report 8552602-9 (Version None)
Quarter: 2012Q3

REPORT INFORMATION
  Report Type: 
  Country: None (occurrence: None)
  Receive Date: 20120723
  Receipt Date: 20120723
  Transmission Date: 20120928
  Serious: Yes (Other)
  Sender: FDA-Public Use
  Company Number: None

PATIENT
  Sex: Male
  Weight: 72.5755 kg

DRUGS (1)
  1. GLIMEPIRIDE [Suspect]
     Indication: BLOOD GLUCOSE INCREASED
     Dosage: 1 MG 1 X DAY PO
     Route: 048
     Dates: start: 20120607, end: 20120613

REACTIONS (6)
  - DRUG INTERACTION [None]
  - DIZZINESS [None]
  - PRESYNCOPE [None]
  - BLOOD GLUCOSE DECREASED [None]
  - PRODUCT QUALITY ISSUE [None]
  - BLOOD PRESSURE DECREASED [None]
